FAERS Safety Report 7488414-7 (Version None)
Quarter: 2011Q2

REPORT INFORMATION
  Report Type: 
  Country: None (occurrence: None)
  Receive Date: 20110518
  Receipt Date: 20110505
  Transmission Date: 20111010
  Serious: Yes (Hospitalization)
  Sender: FDA-Public Use
  Company Number: US-CELGENEUS-163-21880-11022999

PATIENT
  Sex: Female

DRUGS (7)
  1. MARINOL [Concomitant]
     Dosage: 2.5 MILLIGRAM
     Route: 048
     Dates: start: 20110311
  2. COLACE [Concomitant]
     Dosage: 100 MILLIGRAM
     Route: 048
     Dates: start: 20110311
  3. ZOCOR [Concomitant]
     Dosage: 40 MILLIGRAM
     Route: 048
  4. PRILOSEC [Concomitant]
     Dosage: 20 MILLIGRAM
     Route: 048
  5. CARDIZEM [Concomitant]
     Dosage: 60 MILLIGRAM
     Route: 048
     Dates: start: 20110311
  6. MICRO-K [Concomitant]
     Dosage: 10 MILLIEQUIVALENTS
     Route: 048
  7. REVLIMID [Suspect]
     Dosage: 5 MILLIGRAM
     Route: 048
     Dates: start: 20101207, end: 20110127

REACTIONS (1)
  - NEPHROTIC SYNDROME [None]
